FAERS Safety Report 4343173-1 (Version None)
Quarter: 2004Q1

REPORT INFORMATION
  Report Type: 
  Country: None (occurrence: None)
  Receive Date: 20040325
  Receipt Date: 20040123
  Transmission Date: 20041129
  Serious: No
  Sender: FDA-Public Use
  Company Number: USA031255095

PATIENT
  Age: 54 Year
  Sex: Female

DRUGS (6)
  1. FORTEO [Suspect]
     Indication: OSTEOPOROSIS
     Dosage: 20 UG/DAY
     Dates: start: 20031209
  2. DETROL [Concomitant]
  3. LEXAPRO [Concomitant]
  4. MULTIVITAMIN [Concomitant]
  5. VITAMIN D [Concomitant]
  6. TUMS (CALCIUM CARBONATE) [Concomitant]

REACTIONS (2)
  - CONTUSION [None]
  - NAUSEA [None]
